FAERS Safety Report 16526415 (Version 4)
Quarter: 2019Q4

REPORT INFORMATION
  Report Type: Spontaneous
  Country: US (occurrence: US)
  Receive Date: 20190703
  Receipt Date: 20191119
  Transmission Date: 20200122
  Serious: Yes (Hospitalization, Other)
  Sender: FDA-Public Use
  Company Number: US-MALLINCKRODT-T201904694

PATIENT
  Age: 81 Year
  Sex: Female
  Weight: 88 kg

DRUGS (3)
  1. H.P. ACTHAR [Suspect]
     Active Substance: CORTICOTROPIN
     Indication: CHORIORETINITIS
     Dosage: 80 UNITS/1 ML, 2 TIMES PER WEEK AS DIRECTED
     Route: 058
     Dates: start: 201904
  2. H.P. ACTHAR [Suspect]
     Active Substance: CORTICOTROPIN
     Indication: RHEUMATOID ARTHRITIS
     Dosage: 80 UNITS/1 ML, 2 TIMES PER WEEK AS DIRECTED
     Route: 058
     Dates: start: 201812
  3. H.P. ACTHAR [Suspect]
     Active Substance: CORTICOTROPIN
     Dosage: 40 UNITS, 2 TIMES PER WEEK
     Route: 058
     Dates: start: 20190812

REACTIONS (8)
  - Therapeutic product effect incomplete [Unknown]
  - Spinal operation [Unknown]
  - Spinal disorder [Unknown]
  - Glaucoma [Unknown]
  - Glaucoma surgery [Unknown]
  - Blood glucose increased [Unknown]
  - Rash [Unknown]
  - Blindness [Unknown]

NARRATIVE: CASE EVENT DATE: 201906
